FAERS Safety Report 17842979 (Version 1)
Quarter: 2020Q2

REPORT INFORMATION
  Report Type: Spontaneous
  Country: CA (occurrence: CA)
  Receive Date: 20200530
  Receipt Date: 20200530
  Transmission Date: 20200714
  Serious: Yes (Death)
  Sender: FDA-Public Use
  Company Number: CA-ROCHE-2608801

PATIENT
  Age: 65 Year
  Sex: Female

DRUGS (2)
  1. MYCOPHENOLATE MOFETIL. [Suspect]
     Active Substance: MYCOPHENOLATE MOFETIL
     Indication: IMMUNOSUPPRESSANT DRUG THERAPY
  2. MYCOPHENOLATE MOFETIL. [Suspect]
     Active Substance: MYCOPHENOLATE MOFETIL
     Indication: STEM CELL TRANSPLANT
     Route: 065

REACTIONS (7)
  - Mycobacterium avium complex infection [Fatal]
  - Cytomegalovirus infection [Fatal]
  - Graft versus host disease in eye [Fatal]
  - Product use in unapproved indication [Unknown]
  - Off label use [Unknown]
  - Graft versus host disease in liver [Fatal]
  - Graft versus host disease in lung [Fatal]
